FAERS Safety Report 12996072 (Version 3)
Quarter: 2016Q4

REPORT INFORMATION
  Report Type: Spontaneous
  Country: JP (occurrence: JP)
  Receive Date: 20161202
  Receipt Date: 20161229
  Transmission Date: 20170207
  Serious: Yes (Death, Hospitalization)
  Sender: FDA-Public Use
  Company Number: JP-CELGENEUS-JPN-2016117667

PATIENT
  Age: 73 Year
  Sex: Male
  Weight: 47 kg

DRUGS (10)
  1. ABRAXANE [Suspect]
     Active Substance: PACLITAXEL
     Indication: PANCREATIC CARCINOMA
     Dosage: 153.3 MG
     Route: 041
     Dates: start: 20160929, end: 20161006
  2. ANTIMICROBIAL AGENT [Concomitant]
     Indication: PRODUCT USED FOR UNKNOWN INDICATION
     Route: 065
  3. PALONOSETRON HYDROCHLORIDE. [Concomitant]
     Active Substance: PALONOSETRON HYDROCHLORIDE
     Indication: PROPHYLAXIS OF NAUSEA AND VOMITING
     Dosage: .75 MILLIGRAM
     Route: 065
     Dates: start: 20160929, end: 20161006
  4. PANCRELIPASE. [Concomitant]
     Active Substance: PANCRELIPASE
     Indication: ALCOHOLIC LIVER DISEASE
     Dosage: 1800 MILLIGRAM
     Route: 048
     Dates: start: 20161003, end: 20161117
  5. GEMCITABINE HYDROCHLORIDE. [Suspect]
     Active Substance: GEMCITABINE HYDROCHLORIDE
     Indication: PANCREATIC CARCINOMA
     Dosage: 1226.4 MILLIGRAM
     Route: 041
     Dates: start: 201610, end: 201610
  6. PREDNISONE. [Concomitant]
     Active Substance: PREDNISONE
     Indication: INTERSTITIAL LUNG DISEASE
     Route: 065
     Dates: start: 20161017
  7. ISOLEUCINE/LEUCINE/VALINE [Concomitant]
     Indication: ALCOHOLIC LIVER DISEASE
     Dosage: 12.45 GRAM
     Route: 048
     Dates: start: 20161003, end: 20161117
  8. ALOGLIPTIN BENZOATE [Concomitant]
     Active Substance: ALOGLIPTIN BENZOATE
     Indication: DIABETES MELLITUS
     Dosage: 25 MILLIGRAM
     Route: 048
     Dates: end: 20161117
  9. PREGABALIN. [Concomitant]
     Active Substance: PREGABALIN
     Indication: DIABETIC NEUROPATHY
     Dosage: 50 MILLIGRAM
     Route: 048
     Dates: end: 20161117
  10. DEXAMETHASONE SODIUM PHOSPHATE. [Concomitant]
     Active Substance: DEXAMETHASONE SODIUM PHOSPHATE
     Indication: PROPHYLAXIS OF NAUSEA AND VOMITING
     Dosage: 6.6 MILLIGRAM
     Route: 065
     Dates: start: 20160929, end: 20161006

REACTIONS (4)
  - Pneumonia aspiration [Unknown]
  - Death [Fatal]
  - Interstitial lung disease [Recovering/Resolving]
  - Peripheral motor neuropathy [Not Recovered/Not Resolved]

NARRATIVE: CASE EVENT DATE: 20161017
